FAERS Safety Report 10173977 (Version 1)
Quarter: 2014Q2

REPORT INFORMATION
  Report Type: Spontaneous
  Country: US (occurrence: None)
  Receive Date: 20140514
  Receipt Date: 20140514
  Transmission Date: 20141212
  Serious: Yes (Hospitalization)
  Sender: FDA-Public Use
  Company Number: None

PATIENT
  Age: 32 Year
  Sex: Female

DRUGS (7)
  1. INSULIN GLARGINE [Suspect]
     Indication: HYPERGLYCAEMIA
     Dosage: 5 UNITS DAILY SC
     Route: 058
     Dates: start: 20140309, end: 20140314
  2. AMPICILLIN/SULBACTAM [Concomitant]
  3. FENTANYL [Concomitant]
  4. HYDROMORPHONE [Concomitant]
  5. METOPROLOL TARTRATE [Concomitant]
  6. ONDANSETRON [Concomitant]
  7. TACROLIMUS [Concomitant]

REACTIONS (1)
  - Blood glucose decreased [None]
